FAERS Safety Report 9924044 (Version 1)
Quarter: 2014Q1

REPORT INFORMATION
  Report Type: Report from Study
  Country: US (occurrence: US)
  Receive Date: 20140225
  Receipt Date: 20140225
  Transmission Date: 20141002
  Serious: Yes (Other)
  Sender: FDA-Public Use
  Company Number: US-ROCHE-1351496

PATIENT
  Sex: Female

DRUGS (2)
  1. NUTROPIN AQ [Suspect]
     Indication: GROWTH HORMONE DEFICIENCY
     Route: 058
     Dates: start: 20130828, end: 20140114
  2. NUTROPIN AQ [Suspect]
     Route: 058
     Dates: start: 20140114

REACTIONS (2)
  - Growth retardation [Unknown]
  - Weight increased [Unknown]
